FAERS Safety Report 7529580-4 (Version None)
Quarter: 2011Q2

REPORT INFORMATION
  Report Type: 
  Country: None (occurrence: None)
  Receive Date: 20110607
  Receipt Date: 20050803
  Transmission Date: 20111010
  Serious: Yes (Hospitalization)
  Sender: FDA-Public Use
  Company Number: PHHO2005CA10691

PATIENT
  Sex: Female

DRUGS (8)
  1. PANTOPRAZOLE SODIUM [Concomitant]
  2. CORTEF [Concomitant]
  3. SANDOSTATIN LAR [Suspect]
     Dosage: 20 MG, ONCE A MONTH
     Dates: start: 20050509
  4. MAXERAN [Concomitant]
  5. RITALIN [Concomitant]
  6. CLONAZEPAM [Concomitant]
  7. DURAGESIC-100 [Concomitant]
  8. FRAGMIN [Concomitant]

REACTIONS (1)
  - ABDOMINAL ABSCESS [None]
